FAERS Safety Report 5360906-6 (Version None)
Quarter: 2007Q2

REPORT INFORMATION
  Report Type: 
  Country: None (occurrence: None)
  Receive Date: 20070618
  Receipt Date: 20070605
  Transmission Date: 20071010
  Serious: Yes (Other)
  Sender: FDA-Public Use
  Company Number: US-PFIZER INC-2007047871

PATIENT
  Sex: Female
  Weight: 79.545 kg

DRUGS (8)
  1. LYRICA [Suspect]
     Indication: PAIN IN EXTREMITY
     Dates: start: 20070401, end: 20070501
  2. LYRICA [Suspect]
     Indication: HYPOAESTHESIA
  3. LEVOXYL [Concomitant]
  4. VYTORIN [Concomitant]
  5. TOPROL-XL [Concomitant]
  6. WARFARIN SODIUM [Concomitant]
  7. COZAAR [Concomitant]
  8. HYDROCHLOROTHIAZIDE [Concomitant]

REACTIONS (2)
  - OEDEMA PERIPHERAL [None]
  - SWELLING [None]
